FAERS Safety Report 6955388-4 (Version None)
Quarter: 2010Q3

REPORT INFORMATION
  Report Type: 
  Country: None (occurrence: None)
  Receive Date: 20100830
  Receipt Date: 20100818
  Transmission Date: 20110219
  Serious: Yes (Hospitalization, Other)
  Sender: FDA-Public Use
  Company Number: SE-GENZYME-THYM-1001790

PATIENT
  Age: 10 Year
  Sex: Male

DRUGS (11)
  1. THYMOGLOBULIN [Suspect]
     Indication: PROPHYLAXIS AGAINST TRANSPLANT REJECTION
     Dosage: 2 MG/KG, UNK
     Route: 042
  2. THYMOGLOBULIN [Suspect]
     Dosage: 1.5 MG/KG, UNK
     Route: 042
  3. CYCLOSPORINE [Concomitant]
     Indication: IMMUNOSUPPRESSION
     Route: 065
  4. MYCOPHENOLATE MOFETIL [Concomitant]
     Indication: IMMUNOSUPPRESSION
     Route: 065
  5. CORTICOSTEROIDS [Concomitant]
     Indication: IMMUNOSUPPRESSION
     Route: 065
  6. CEFTAZIDIME [Concomitant]
     Indication: PROPHYLAXIS
     Route: 042
  7. PREDNISOLONE [Concomitant]
     Indication: IMMUNOSUPPRESSION
     Dosage: UNK
     Route: 065
  8. NYSTATIN [Concomitant]
     Indication: ANTIVIRAL PROPHYLAXIS
     Route: 065
  9. TOBRAMYCIN [Concomitant]
     Indication: PROPHYLAXIS
     Route: 055
  10. GANCICLOVIR [Concomitant]
     Indication: ANTIVIRAL PROPHYLAXIS
     Route: 042
  11. TRIMETHOPRIM + SULFAMETHOXAZOLE [Concomitant]
     Indication: ANTIFUNGAL PROPHYLAXIS

REACTIONS (10)
  - DECREASED APPETITE [None]
  - HEARING IMPAIRED [None]
  - IMMUNODEFICIENCY [None]
  - LEUKOPENIA [None]
  - LUNG TRANSPLANT REJECTION [None]
  - MYCOBACTERIUM ABSCESSUS INFECTION [None]
  - NAUSEA [None]
  - PAIN [None]
  - PNEUMONITIS [None]
  - RENAL IMPAIRMENT [None]
